FAERS Safety Report 5007548-X (Version None)
Quarter: 2006Q2

REPORT INFORMATION
  Report Type: 
  Country: None (occurrence: None)
  Receive Date: 20060405
  Receipt Date: 20050811
  Transmission Date: 20061013
  Serious: Yes (Other)
  Sender: FDA-Public Use
  Company Number: PHEH2005US08902

PATIENT
  Age: 36 Year
  Sex: Female

DRUGS (2)
  1. VIVELLE-DOT [Suspect]
     Dosage: 0.05MG/DAY, TWICE A WEEK, TRANSDERMAL
     Route: 062
  2. LEXAPRO [Concomitant]

REACTIONS (4)
  - CRYING [None]
  - DEPRESSION [None]
  - FATIGUE [None]
  - RASH [None]
